FAERS Safety Report 9482149 (Version 7)
Quarter: 2014Q1

REPORT INFORMATION
  Report Type: Report from Study
  Country: AR (occurrence: AR)
  Receive Date: 20130828
  Receipt Date: 20140116
  Transmission Date: 20141002
  Serious: Yes (Life-Threatening, Hospitalization)
  Sender: FDA-Public Use
  Company Number: AR-ROCHE-1265676

PATIENT
  Age: 32 Year
  Sex: Female
  Weight: 52 kg

DRUGS (7)
  1. IBUPROFEN [Concomitant]
     Route: 065
     Dates: start: 20130815, end: 20130827
  2. IBUPROFEN [Concomitant]
     Route: 065
     Dates: start: 20130916, end: 20130919
  3. IBUPROFEN [Concomitant]
     Route: 065
     Dates: start: 20130901, end: 20130903
  4. LEVONORGESTREL [Concomitant]
     Route: 065
     Dates: start: 201210
  5. PREDNISONE [Concomitant]
     Route: 065
     Dates: start: 20130822, end: 20130829
  6. VEMURAFENIB [Suspect]
     Indication: MALIGNANT MELANOMA
     Dosage: THE LAST DOSE PRIOR TO THE EVENT WAS ON 21/AUG/2013.
     Route: 048
     Dates: start: 20130808, end: 20130822
  7. VEMURAFENIB [Suspect]
     Route: 048
     Dates: start: 20130829

REACTIONS (1)
  - Dermatitis exfoliative [Recovered/Resolved]
